FAERS Safety Report 10271879 (Version 1)
Quarter: 2014Q3

REPORT INFORMATION
  Report Type: Spontaneous
  Country: TR (occurrence: TR)
  Receive Date: 20140702
  Receipt Date: 20140702
  Transmission Date: 20150326
  Serious: Yes (Hospitalization)
  Sender: FDA-Public Use
  Company Number: PHHY2014TR078735

PATIENT
  Age: 70 Year
  Sex: Male

DRUGS (2)
  1. METAMIZOLE [Suspect]
     Active Substance: METAMIZOLE
     Indication: HEADACHE
  2. AMPICILLIN SODIUM+SULBACTAM SODIUM [Suspect]
     Active Substance: AMPICILLIN SODIUM\SULBACTAM SODIUM

REACTIONS (11)
  - Kounis syndrome [Recovered/Resolved]
  - Erythema [Recovered/Resolved]
  - Anaphylactoid reaction [Recovered/Resolved]
  - Skin lesion [Recovered/Resolved]
  - Coronary artery stenosis [Recovered/Resolved]
  - Hypersensitivity [Recovered/Resolved]
  - Dyspnoea [Recovered/Resolved]
  - Toxic epidermal necrolysis [Recovered/Resolved]
  - Troponin increased [Recovered/Resolved]
  - Cardio-respiratory arrest [Recovered/Resolved]
  - Acute myocardial infarction [Recovered/Resolved]
